FAERS Safety Report 5674685-6 (Version None)
Quarter: 2008Q1

REPORT INFORMATION
  Report Type: 
  Country: None (occurrence: None)
  Receive Date: 20080320
  Receipt Date: 20080318
  Transmission Date: 20080703
  Serious: Yes (Other)
  Sender: FDA-Public Use
  Company Number: B0508655A

PATIENT
  Age: 49 Year
  Sex: Male
  Weight: 72 kg

DRUGS (9)
  1. PAXIL [Suspect]
     Indication: DEPRESSION
     Dosage: 20MG PER DAY
     Route: 048
  2. ALCOHOL [Suspect]
     Route: 065
  3. MEILAX [Suspect]
     Indication: DEPRESSION
     Dosage: 1MG TWICE PER DAY
     Route: 048
  4. DOGMATYL [Suspect]
     Indication: DEPRESSION
     Dosage: 50MG TWICE PER DAY
     Route: 048
  5. ROHYPNOL [Suspect]
     Indication: DEPRESSION
     Dosage: 3MG PER DAY
     Route: 048
  6. HERBESSER R [Suspect]
     Indication: ANGINA PECTORIS
     Route: 048
     Dates: start: 20071013
  7. TOFRANIL [Suspect]
     Indication: DEPRESSION
     Dosage: 10MG TWICE PER DAY
     Route: 048
  8. SIGMART [Concomitant]
     Indication: ANGINA PECTORIS
     Dosage: 10MG PER DAY
     Route: 048
     Dates: start: 20071013
  9. UNKNOWN DRUG [Concomitant]
     Indication: ANGINA PECTORIS
     Route: 060
     Dates: start: 20071013

REACTIONS (4)
  - ANGINA PECTORIS [None]
  - DRUG INTERACTION [None]
  - HYPOGLYCAEMIA [None]
  - MUSCULOSKELETAL STIFFNESS [None]
